FAERS Safety Report 10645390 (Version 2)
Quarter: 2015Q1

REPORT INFORMATION
  Report Type: Spontaneous
  Country: GB (occurrence: GB)
  Receive Date: 20141211
  Receipt Date: 20150109
  Transmission Date: 20150720
  Serious: Yes (Death, Other)
  Sender: FDA-Public Use
  Company Number: PHFR2014GB008590

PATIENT
  Age: 67 Year
  Sex: Female
  Weight: 62.7 kg

DRUGS (11)
  1. PROCYCLIDINE [Suspect]
     Active Substance: PROCYCLIDINE
     Indication: CHOLINERGIC SYNDROME
     Dosage: 2.5 MG, PRN (HALF TABLET TO BE TAKEN UPTO THREE TIMES DAILY)
     Route: 048
     Dates: start: 20140123, end: 20141120
  2. PARACETAMOL [Concomitant]
     Active Substance: ACETAMINOPHEN
     Indication: GENERALISED TONIC-CLONIC SEIZURE
     Dosage: 500 MG ONE OR TWO, QID
     Route: 065
     Dates: start: 20140123, end: 20140826
  3. CITALOPRAM [Suspect]
     Active Substance: CITALOPRAM HYDROBROMIDE
     Indication: GENERALISED TONIC-CLONIC SEIZURE
  4. OMEPRAZOLE. [Concomitant]
     Active Substance: OMEPRAZOLE
     Indication: SCHIZOPHRENIA
     Dosage: 20 MG, QD
     Route: 065
     Dates: start: 20140123, end: 20141120
  5. SODIUM VALPROATE [Concomitant]
     Active Substance: VALPROATE SODIUM
     Indication: EPILEPSY
     Dosage: 1 DF, UNK
     Route: 065
     Dates: start: 20140123, end: 20141120
  6. CLOZAPINE. [Suspect]
     Active Substance: CLOZAPINE
     Indication: PSYCHOTIC DISORDER
     Dosage: 500 OT, UNK
     Route: 048
  7. EPILIM [Suspect]
     Active Substance: VALPROATE SODIUM
     Indication: EPILEPSY
     Dosage: 300 MG, BID
     Route: 048
     Dates: start: 20140123, end: 20141120
  8. CITALOPRAM [Suspect]
     Active Substance: CITALOPRAM HYDROBROMIDE
     Indication: ANTIDEPRESSANT THERAPY
     Dosage: 10 MG, QD
     Route: 048
     Dates: start: 20140123, end: 20141120
  9. LACTULOSE. [Concomitant]
     Active Substance: LACTULOSE
     Indication: PRODUCT USED FOR UNKNOWN INDICATION
     Dosage: 5 TO 10 ML BID
     Route: 065
     Dates: start: 20140215, end: 20141120
  10. CLOZARIL [Suspect]
     Active Substance: CLOZAPINE
     Indication: SCHIZOPHRENIA
     Dosage: UNK
     Route: 048
     Dates: start: 20030424
  11. PROCYCLIDINE [Suspect]
     Active Substance: PROCYCLIDINE
     Indication: SCHIZOPHRENIA

REACTIONS (6)
  - Pulmonary oedema [Fatal]
  - Myocardial ischaemia [Fatal]
  - Coronary artery stenosis [Fatal]
  - Myocardial fibrosis [Unknown]
  - Arteriosclerosis coronary artery [Fatal]
  - Activated partial thromboplastin time abnormal [Fatal]

NARRATIVE: CASE EVENT DATE: 20141202
